FAERS Safety Report 6523397-5 (Version None)
Quarter: 2009Q4

REPORT INFORMATION
  Report Type: 
  Country: None (occurrence: None)
  Receive Date: 20091231
  Receipt Date: 20091221
  Transmission Date: 20100525
  Serious: Yes (Other)
  Sender: FDA-Public Use
  Company Number: JP-ROCHE-676810

PATIENT
  Age: 80 Year
  Sex: Male

DRUGS (3)
  1. TAMIFLU [Suspect]
     Indication: INFLUENZA
     Route: 048
     Dates: start: 20091220, end: 20091221
  2. MAXIPIME [Concomitant]
     Dates: start: 20091220
  3. TS-1 [Concomitant]
     Route: 048
     Dates: start: 20080101, end: 20091201

REACTIONS (2)
  - BLOOD CREATINE PHOSPHOKINASE INCREASED [None]
  - RHABDOMYOLYSIS [None]
